FAERS Safety Report 9960760 (Version 1)
Quarter: 2014Q1

REPORT INFORMATION
  Report Type: Report from Study
  Country: US (occurrence: US)
  Receive Date: 20140305
  Receipt Date: 20140305
  Transmission Date: 20141002
  Serious: No
  Sender: FDA-Public Use
  Company Number: US-ABBVIE-13P-163-1108355-00

PATIENT
  Age: 70 Year
  Sex: Female

DRUGS (14)
  1. HUMIRA [Suspect]
     Indication: PSORIASIS
     Dates: start: 20130530
  2. HUMIRA [Suspect]
     Dates: start: 20130606
  3. HUMIRA [Suspect]
     Dosage: SUPPOSED TO START 20 JUN 2013
  4. OMEPRAZOLE [Concomitant]
     Indication: GASTROOESOPHAGEAL REFLUX DISEASE
  5. METFORMIN [Concomitant]
     Indication: DIABETES MELLITUS
  6. ALLOPURINOL [Concomitant]
     Indication: GOUT
  7. BENAZEPRIL [Concomitant]
     Indication: BLOOD PRESSURE
  8. HYDROCHLOROTHIAZIDE [Concomitant]
     Indication: BLOOD PRESSURE
  9. ASA [Concomitant]
     Indication: ANTICOAGULANT THERAPY
  10. COLCRYS [Concomitant]
     Indication: GOUT
  11. ATENOLOL [Concomitant]
     Indication: BLOOD PRESSURE
  12. ZOLPIDEM [Concomitant]
     Indication: INSOMNIA
     Dosage: AT BEDTIME
  13. LOVASTATIN [Concomitant]
     Indication: BLOOD TRIGLYCERIDES
  14. TOPICALS [Concomitant]
     Indication: PSORIASIS

REACTIONS (2)
  - Injection site bruising [Recovered/Resolved]
  - Injection site discomfort [Recovered/Resolved]
